FAERS Safety Report 5847605-9 (Version None)
Quarter: 2008Q3

REPORT INFORMATION
  Report Type: 
  Country: None (occurrence: None)
  Receive Date: 20080815
  Receipt Date: 20080815
  Transmission Date: 20090109
  Serious: Yes (Death)
  Sender: FDA-Public Use
  Company Number: None

PATIENT
  Sex: Male
  Weight: 72.5755 kg

DRUGS (3)
  1. CYMBALTA [Suspect]
     Indication: ANXIETY
     Dosage: 90 MG DAILY TABLETS
     Dates: start: 20061001, end: 20080208
  2. REMICADE [Concomitant]
  3. IRON INFUSION [Concomitant]

REACTIONS (8)
  - ABNORMAL BEHAVIOUR [None]
  - ANGER [None]
  - COMPLETED SUICIDE [None]
  - DISEASE PROGRESSION [None]
  - EMOTIONAL DISORDER [None]
  - INSOMNIA [None]
  - NERVOUS SYSTEM DISORDER [None]
  - OVERDOSE [None]
